FAERS Safety Report 8989728 (Version 2)
Quarter: 2014Q1

REPORT INFORMATION
  Report Type: Spontaneous
  Country: US (occurrence: US)
  Receive Date: 20121228
  Receipt Date: 20140107
  Transmission Date: 20141002
  Serious: Yes (Hospitalization, Other)
  Sender: FDA-Public Use
  Company Number: US-BAYER-2012-135706

PATIENT
  Age: 24 Year
  Sex: Female

DRUGS (5)
  1. YAZ [Suspect]
     Dosage: UNK
     Dates: start: 2006, end: 2007
  2. YASMIN [Suspect]
     Dosage: UNK
     Dates: start: 2006, end: 2007
  3. OCELLA [Suspect]
     Dosage: UNK
     Dates: start: 2006, end: 2007
  4. BEYAZ [Suspect]
     Dosage: UNK
     Dates: start: 2006, end: 2007
  5. IRON SUPPLEMENT [Concomitant]
     Indication: ANAEMIA
     Dosage: 325 MG, UNK
     Route: 048

REACTIONS (7)
  - Cholecystitis chronic [None]
  - Cholecystectomy [None]
  - Injury [None]
  - Pain [None]
  - Emotional distress [None]
  - Anxiety [None]
  - Psychological trauma [None]
